FAERS Safety Report 11787167 (Version 1)
Quarter: 2015Q4

REPORT INFORMATION
  Report Type: Spontaneous
  Country: CH (occurrence: CH)
  Receive Date: 20151130
  Receipt Date: 20151130
  Transmission Date: 20160305
  Serious: Yes (Other)
  Sender: FDA-Public Use
  Company Number: CH-GLAXOSMITHKLINE-CH2015168086

PATIENT
  Age: 86 Year
  Sex: Male

DRUGS (11)
  1. ASPIRIN CARDIO [Concomitant]
     Active Substance: ASPIRIN
     Route: 048
     Dates: start: 20150604
  2. EXFORGE [Suspect]
     Active Substance: AMLODIPINE BESYLATE\VALSARTAN
     Route: 048
     Dates: start: 2014
  3. SUPRADYN ENERGY [Concomitant]
     Route: 048
  4. DAFALGAN [Suspect]
     Active Substance: ACETAMINOPHEN
     Route: 048
  5. AVODART [Suspect]
     Active Substance: DUTASTERIDE
     Dosage: 0.5 MG, QD
     Route: 048
     Dates: start: 20150604
  6. FOLIC ACID. [Suspect]
     Active Substance: FOLIC ACID
     Route: 048
  7. PADMED CIRCOSAN [Suspect]
     Active Substance: CALCIUM SULFATE\CAMPHOR\HERBALS
     Route: 048
  8. DUODART [Suspect]
     Active Substance: DUTASTERIDE\TAMSULOSIN
     Route: 048
     Dates: end: 20150603
  9. NASONEX [Suspect]
     Active Substance: MOMETASONE FUROATE
     Route: 045
  10. AUGMENTIN [Concomitant]
     Active Substance: AMOXICILLIN\CLAVULANATE POTASSIUM
     Route: 048
     Dates: end: 20150603
  11. PLAVIX [Concomitant]
     Active Substance: CLOPIDOGREL BISULFATE
     Route: 048
     Dates: start: 20150604

REACTIONS (3)
  - Hyponatraemia [Recovered/Resolved]
  - Blood potassium increased [None]
  - Inappropriate antidiuretic hormone secretion [Recovered/Resolved]

NARRATIVE: CASE EVENT DATE: 20150602
